FAERS Safety Report 25294748 (Version 2)
Quarter: 2025Q4

REPORT INFORMATION
  Report Type: Spontaneous
  Country: US (occurrence: US)
  Receive Date: 20250511
  Receipt Date: 20251107
  Transmission Date: 20260118
  Serious: No
  Sender: SANOFI AVENTIS
  Company Number: US-SA-2025SA128784

PATIENT
  Age: 48 Year
  Sex: Female

DRUGS (1)
  1. DUPIXENT [Suspect]
     Active Substance: DUPILUMAB
     Indication: Asthma
     Dosage: 300 MG, QOW
     Route: 058

REACTIONS (10)
  - COVID-19 [Unknown]
  - Muscular weakness [Unknown]
  - Neuralgia [Unknown]
  - Hypoaesthesia [Unknown]
  - Migraine [Unknown]
  - Influenza [Unknown]
  - Myalgia [Unknown]
  - Asthma [Unknown]
  - Therapeutic response shortened [Unknown]
  - Dyspnoea [Unknown]

NARRATIVE: CASE EVENT DATE: 20250301
